FAERS Safety Report 16883784 (Version 3)
Quarter: 2020Q1

REPORT INFORMATION
  Report Type: Spontaneous
  Country: US (occurrence: US)
  Receive Date: 20191004
  Receipt Date: 20200110
  Transmission Date: 20200409
  Serious: Yes (Other)
  Sender: FDA-Public Use
  Company Number: US-009507513-1909USA014169

PATIENT
  Sex: Female
  Weight: 47.5 kg

DRUGS (2)
  1. NEXPLANON [Suspect]
     Active Substance: ETONOGESTREL
     Indication: CONTRACEPTION
     Dosage: 1 IMPLANT, UNK
     Route: 059
  2. NEXPLANON [Suspect]
     Active Substance: ETONOGESTREL
     Dosage: 1 IMPLANT, UNK
     Route: 059
     Dates: start: 20190526, end: 20190924

REACTIONS (2)
  - Suicidal ideation [Unknown]
  - Depression [Unknown]

NARRATIVE: CASE EVENT DATE: 2019
